FAERS Safety Report 24858679 (Version 1)
Quarter: 2025Q1

REPORT INFORMATION
  Report Type: Other
  Country: JP (occurrence: JP)
  Receive Date: 20250118
  Receipt Date: 20250118
  Transmission Date: 20250408
  Serious: Yes (Death, Hospitalization)
  Sender: ANI
  Company Number: JP-ANIPHARMA-015354

PATIENT
  Age: 75 Year
  Sex: Female

DRUGS (1)
  1. TEMOZOLOMIDE [Suspect]
     Active Substance: TEMOZOLOMIDE
     Indication: Glioblastoma

REACTIONS (1)
  - Drug ineffective [Fatal]
